FAERS Safety Report 20973262 (Version 1)
Quarter: 2022Q2

REPORT INFORMATION
  Report Type: Spontaneous
  Country: FR (occurrence: FR)
  Receive Date: 20220617
  Receipt Date: 20220617
  Transmission Date: 20220721
  Serious: Yes (Other)
  Sender: FDA-Public Use
  Company Number: None

PATIENT
  Age: 61 Year
  Sex: Female
  Weight: 68 kg

DRUGS (6)
  1. ATORVASTATIN [Suspect]
     Active Substance: ATORVASTATIN
     Indication: Cardiovascular event prophylaxis
     Route: 048
     Dates: start: 201909, end: 20210713
  2. IRBESARTAN [Suspect]
     Active Substance: IRBESARTAN
     Indication: Cardiovascular event prophylaxis
     Route: 048
     Dates: start: 201909
  3. BISOPROLOL FUMARATE [Suspect]
     Active Substance: BISOPROLOL FUMARATE
     Indication: Cardiovascular event prophylaxis
     Dosage: BISOPROLOL (FUMARATE DE)
     Route: 048
     Dates: start: 201909
  4. COMIRNATY [Suspect]
     Active Substance: TOZINAMERAN
     Indication: COVID-19 immunisation
     Dosage: D1+D2
     Route: 048
     Dates: start: 20210417, end: 20210518
  5. LIPTRUZET [Suspect]
     Active Substance: ATORVASTATIN CALCIUM\EZETIMIBE
     Indication: Cardiovascular event prophylaxis
     Dosage: 10 MG/20 MG,
     Route: 048
     Dates: start: 20210713, end: 20220224
  6. ASPIRIN [Suspect]
     Active Substance: ASPIRIN
     Indication: Cardiovascular event prophylaxis
     Route: 048
     Dates: start: 201909

REACTIONS (2)
  - Pruritus [Not Recovered/Not Resolved]
  - Lichen planopilaris [Not Recovered/Not Resolved]

NARRATIVE: CASE EVENT DATE: 20211001
